FAERS Safety Report 13711814 (Version 1)
Quarter: 2017Q3

REPORT INFORMATION
  Report Type: Spontaneous
  Country: US (occurrence: US)
  Receive Date: 20170703
  Receipt Date: 20170703
  Transmission Date: 20171127
  Serious: Yes (Disabling)
  Sender: FDA-Public Use
  Company Number: None

PATIENT
  Age: 4 Year
  Sex: Female
  Weight: 17.1 kg

DRUGS (1)
  1. MIRALAX [Suspect]
     Active Substance: POLYETHYLENE GLYCOL 3350
     Indication: CONSTIPATION
     Dosage: 1 CAP DAILY ORAL
     Route: 048
     Dates: start: 20160701, end: 20170701

REACTIONS (2)
  - Abnormal behaviour [None]
  - Seizure [None]

NARRATIVE: CASE EVENT DATE: 20170104
